FAERS Safety Report 6521717-9 (Version None)
Quarter: 2009Q4

REPORT INFORMATION
  Report Type: 
  Country: None (occurrence: None)
  Receive Date: 20091222
  Receipt Date: 20091208
  Transmission Date: 20100525
  Serious: Yes (Hospitalization)
  Sender: FDA-Public Use
  Company Number: 233850K09USA

PATIENT
  Age: 60 Year
  Sex: Female
  Weight: 105 kg

DRUGS (6)
  1. REBIF [Suspect]
     Indication: MULTIPLE SCLEROSIS
     Dosage: 44 MCG, 3 IN 1 WEEKS, SUBCUTANEOUS
     Route: 058
     Dates: start: 20060216
  2. COUMADIN [Concomitant]
  3. CARDIZEM (DILTIAZEM /00489701/) [Concomitant]
  4. LIORESAL [Concomitant]
  5. LEVAQUIN [Concomitant]
  6. BENECOL (ALL OTHER THERAPEUTIC PRODUCTS) [Concomitant]

REACTIONS (2)
  - HIATUS HERNIA [None]
  - PNEUMONIA [None]
